FAERS Safety Report 7774939-3 (Version None)
Quarter: 2011Q3

REPORT INFORMATION
  Report Type: 
  Country: None (occurrence: None)
  Receive Date: 20110923
  Receipt Date: 20110919
  Transmission Date: 20111222
  Serious: Yes (Hospitalization, Other)
  Sender: FDA-Public Use
  Company Number: DE-ABBOTT-11P-062-0694834-00

PATIENT
  Sex: Female
  Weight: 48 kg

DRUGS (6)
  1. PREDNISOLONE [Concomitant]
  2. PREDNISOLONE [Concomitant]
     Indication: PRODUCT USED FOR UNKNOWN INDICATION
     Route: 048
  3. HUMIRA [Suspect]
     Route: 058
     Dates: start: 20100801, end: 20101023
  4. STEROID TREATMENT [Concomitant]
     Indication: PRODUCT USED FOR UNKNOWN INDICATION
     Dosage: CHANGING DOSES
  5. HUMIRA [Suspect]
     Indication: ANKYLOSING SPONDYLITIS
     Route: 058
     Dates: start: 20100608, end: 20100801
  6. PANTOPRAZOLE [Concomitant]
     Indication: PRODUCT USED FOR UNKNOWN INDICATION
     Route: 048

REACTIONS (8)
  - OEDEMA PERIPHERAL [None]
  - JOINT SWELLING [None]
  - BURNING SENSATION [None]
  - RASH PUSTULAR [None]
  - ECZEMA NUMMULAR [None]
  - ECZEMA [None]
  - DYSPHONIA [None]
  - ERYTHEMA [None]
